FAERS Safety Report 14734140 (Version 2)
Quarter: 2018Q3

REPORT INFORMATION
  Report Type: Spontaneous
  Country: DE (occurrence: DE)
  Receive Date: 20180409
  Receipt Date: 20180802
  Transmission Date: 20181010
  Serious: Yes (Hospitalization, Other)
  Sender: FDA-Public Use
  Company Number: PHHY2017DE180844

PATIENT
  Age: 20 Year
  Sex: Male

DRUGS (7)
  1. ZIPRASIDONE. [Interacting]
     Active Substance: ZIPRASIDONE
     Dosage: 80 MG, QD
     Route: 065
  2. RISPERIDON [Concomitant]
     Active Substance: RISPERIDONE
     Indication: SCHIZOPHRENIA
     Route: 065
  3. SERTRALINE [Interacting]
     Active Substance: SERTRALINE HYDROCHLORIDE
     Indication: MENTAL DISORDER
     Dosage: 50 MG, QD
     Route: 065
  4. ZIPRASIDONE. [Suspect]
     Active Substance: ZIPRASIDONE
     Indication: MENTAL DISORDER
     Dosage: 60 MG, QD
     Route: 065
  5. SERTRALINE [Interacting]
     Active Substance: SERTRALINE HYDROCHLORIDE
     Dosage: 100 MG, QD
     Route: 065
  6. OLANZAPIN [Concomitant]
     Active Substance: OLANZAPINE
     Indication: SCHIZOPHRENIA
     Route: 065
  7. ARIPIPRAZOL [Concomitant]
     Active Substance: ARIPIPRAZOLE
     Indication: SCHIZOPHRENIA
     Route: 065

REACTIONS (12)
  - Hallucination, auditory [Recovered/Resolved]
  - Hyperhidrosis [Recovered/Resolved]
  - Ventricular tachycardia [Recovered/Resolved]
  - Muscle spasms [Recovered/Resolved]
  - Depressive symptom [Unknown]
  - Nausea [Recovered/Resolved]
  - Disturbance in attention [Recovered/Resolved]
  - Agitation [Recovered/Resolved]
  - Product use in unapproved indication [Unknown]
  - Serotonin syndrome [Recovered/Resolved]
  - Cardiac arrest [Unknown]
  - Drug interaction [Unknown]
